FAERS Safety Report 24579803 (Version 2)
Quarter: 2025Q1

REPORT INFORMATION
  Report Type: Spontaneous
  Country: DE (occurrence: DE)
  Receive Date: 20241105
  Receipt Date: 20250206
  Transmission Date: 20250409
  Serious: Yes (Hospitalization, Disabling, Other)
  Sender: RANBAXY
  Company Number: DE-SUN PHARMACEUTICAL INDUSTRIES LTD-2024RR-476767

PATIENT
  Age: 62 Year
  Sex: Male
  Weight: 61 kg

DRUGS (10)
  1. ATORVASTATIN [Suspect]
     Active Substance: ATORVASTATIN
     Indication: Type 2 diabetes mellitus
     Route: 048
     Dates: start: 2021
  2. ATORVASTATIN [Suspect]
     Active Substance: ATORVASTATIN
     Indication: Arteriosclerosis
  3. ATORVASTATIN [Suspect]
     Active Substance: ATORVASTATIN
     Indication: Cerebellar infarction
  4. PANTOPRAZOLE SODIUM [Concomitant]
     Active Substance: PANTOPRAZOLE SODIUM
     Indication: Chronic gastritis
     Dosage: DAILY DOSE: 40 MG EVERY 1 DAY
     Route: 048
  5. INSULIN DEGLUDEC [Concomitant]
     Active Substance: INSULIN DEGLUDEC
     Indication: Type 2 diabetes mellitus
     Dosage: 2 IE-0-2IE DAILY DOSE: 4 [IU] EVERY 1 DAY
     Route: 058
  6. METFORMIN [Concomitant]
     Active Substance: METFORMIN HYDROCHLORIDE
     Indication: Type 2 diabetes mellitus
     Dosage: 1000 MG 1-0-1 DAILY DOSE: 2000 MG EVERY 1 DAY
     Route: 048
  7. DULAGLUTIDE [Concomitant]
     Active Substance: DULAGLUTIDE
     Indication: Type 2 diabetes mellitus
     Dosage: DAILY DOSE: 1.5 MG EVERY 7 DAYS
     Route: 058
  8. DAPAGLIFLOZIN [Concomitant]
     Active Substance: DAPAGLIFLOZIN
     Indication: Type 2 diabetes mellitus
     Dosage: 5 MG 1-0-1
     Route: 048
  9. RIVAROXABAN [Concomitant]
     Active Substance: RIVAROXABAN
     Indication: Thrombosis
     Dosage: 20 MG 1-0-0 DAILY DOSE: 20 MG EVERY 1 DAY
     Route: 048
  10. CANDESARTAN [Concomitant]
     Active Substance: CANDESARTAN
     Indication: Hypertension
     Dosage: 4 MG 0.5-0-0 DAILY DOSE: 2 MG EVERY 1 DAY
     Route: 048

REACTIONS (2)
  - Autoimmune myositis [Not Recovered/Not Resolved]
  - Immune-mediated myositis [Not Recovered/Not Resolved]

NARRATIVE: CASE EVENT DATE: 20240501
